FAERS Safety Report 12852594 (Version 1)
Quarter: 2016Q4

REPORT INFORMATION
  Report Type: Spontaneous
  Country: US (occurrence: US)
  Receive Date: 20161015
  Receipt Date: 20161015
  Transmission Date: 20170207
  Serious: Yes (Hospitalization)
  Sender: FDA-Public Use
  Company Number: None

PATIENT
  Age: 69 Year
  Sex: Female
  Weight: 47.25 kg

DRUGS (2)
  1. CALCIUM [Concomitant]
     Active Substance: CALCIUM
  2. IBANDRONATE SODIUM, 150 MG BASE APOTEX CORP [Suspect]
     Active Substance: IBANDRONATE SODIUM
     Indication: OSTEOPOROSIS
     Dosage: ?          QUANTITY:1 TABLET(S);OTHER FREQUENCY:MONTHLY;?
     Route: 048
     Dates: start: 20150715, end: 20160715

REACTIONS (4)
  - Osteonecrosis [None]
  - Stomatitis [None]
  - Product substitution issue [None]
  - Hiatus hernia [None]

NARRATIVE: CASE EVENT DATE: 20160927
